FAERS Safety Report 20705055 (Version 1)
Quarter: 2022Q2

REPORT INFORMATION
  Report Type: Spontaneous
  Country: US (occurrence: US)
  Receive Date: 20220413
  Receipt Date: 20220413
  Transmission Date: 20220721
  Serious: Yes (Other)
  Sender: FDA-Public Use
  Company Number: US-BoehringerIngelheim-2022-BI-163879

PATIENT
  Sex: Female

DRUGS (1)
  1. JARDIANCE [Suspect]
     Active Substance: EMPAGLIFLOZIN
     Indication: Product used for unknown indication
     Dates: start: 202107, end: 202203

REACTIONS (9)
  - Blindness [Unknown]
  - Hyponatraemia [Recovered/Resolved]
  - Blood creatinine decreased [Recovered/Resolved]
  - Paraesthesia oral [Unknown]
  - Hypertension [Unknown]
  - Dizziness [Unknown]
  - Vision blurred [Unknown]
  - Fungal infection [Unknown]
  - Drug hypersensitivity [Unknown]
